FAERS Safety Report 12546580 (Version 1)
Quarter: 2016Q3

REPORT INFORMATION
  Report Type: Spontaneous
  Country: GB (occurrence: GB)
  Receive Date: 20160711
  Receipt Date: 20160711
  Transmission Date: 20161109
  Serious: Yes (Hospitalization)
  Sender: FDA-Public Use
  Company Number: GB-MYLANLABS-2016M1028548

PATIENT

DRUGS (1)
  1. KETAMINE [Suspect]
     Active Substance: KETAMINE
     Indication: PRODUCT USED FOR UNKNOWN INDICATION
     Dosage: OVER THE PAST 4 YEARS
     Route: 048

REACTIONS (3)
  - Drug abuse [Recovering/Resolving]
  - Biliary colic [Recovering/Resolving]
  - Biliary dilatation [Recovering/Resolving]
